FAERS Safety Report 7575309-3 (Version None)
Quarter: 2011Q2

REPORT INFORMATION
  Report Type: 
  Country: None (occurrence: None)
  Receive Date: 20110627
  Receipt Date: 20110617
  Transmission Date: 20111010
  Serious: Yes (Other)
  Sender: FDA-Public Use
  Company Number: US-ASTRAZENECA-2011SE13298

PATIENT
  Sex: Female

DRUGS (2)
  1. CRESTOR [Suspect]
     Route: 048
  2. CRESTOR [Suspect]
     Route: 048

REACTIONS (15)
  - DISORIENTATION [None]
  - NAUSEA [None]
  - FATIGUE [None]
  - MALAISE [None]
  - CONFUSIONAL STATE [None]
  - AMNESIA [None]
  - PAIN IN EXTREMITY [None]
  - MYALGIA [None]
  - BRADYPHRENIA [None]
  - INFLUENZA [None]
  - ASTHENIA [None]
  - HEADACHE [None]
  - MUSCLE SPASMS [None]
  - ARTHRITIS [None]
  - BREAST CANCER [None]
